FAERS Safety Report 13162527 (Version 2)
Quarter: 2017Q1

REPORT INFORMATION
  Report Type: Report from Study
  Country: US (occurrence: US)
  Receive Date: 20170130
  Receipt Date: 20170217
  Transmission Date: 20170428
  Serious: Yes (Death, Hospitalization, Other)
  Sender: FDA-Public Use
  Company Number: US-GILEAD-2017-0255191

PATIENT
  Age: 56 Year
  Sex: Female

DRUGS (2)
  1. ORENITRAM [Concomitant]
     Active Substance: TREPROSTINIL
  2. AMBRISENTAN [Suspect]
     Active Substance: AMBRISENTAN
     Indication: PULMONARY ARTERIAL HYPERTENSION
     Dosage: 10 MG, UNK
     Route: 065
     Dates: start: 20090310

REACTIONS (10)
  - Cardiogenic shock [Unknown]
  - Drug dose omission [Unknown]
  - Pulmonary arterial hypertension [Unknown]
  - Bradycardia [Unknown]
  - Right ventricular failure [Fatal]
  - Chest pain [Unknown]
  - Back pain [Unknown]
  - Respiratory failure [Unknown]
  - Lethargy [Unknown]
  - Hypoxia [Unknown]

NARRATIVE: CASE EVENT DATE: 20161227
